FAERS Safety Report 5363942-9 (Version None)
Quarter: 2007Q2

REPORT INFORMATION
  Report Type: 
  Country: None (occurrence: None)
  Receive Date: 20070620
  Receipt Date: 20070608
  Transmission Date: 20071010
  Serious: Yes (Hospitalization, Other)
  Sender: FDA-Public Use
  Company Number: US-ELI_LILLY_AND_COMPANY-US200706001873

PATIENT
  Sex: Male

DRUGS (8)
  1. CYMBALTA [Suspect]
     Dosage: UNK, UNKNOWN
     Route: 048
  2. METHADONE HCL [Concomitant]
     Dosage: UNK, UNKNOWN
  3. LISINOPRIL [Concomitant]
     Dosage: UNK, UNKNOWN
  4. HYDROCHLOROTHIAZIDE [Concomitant]
     Dosage: UNK, UNKNOWN
  5. XANAX [Concomitant]
     Dosage: UNK, UNKNOWN
  6. PEPCID COMPLETE [Concomitant]
     Dosage: UNK, UNKNOWN
  7. BENADRYL [Concomitant]
     Dosage: UNK, UNKNOWN
  8. IBUPROFEN [Concomitant]
     Dosage: UNK, UNKNOWN

REACTIONS (2)
  - ELECTROCARDIOGRAM QT PROLONGED [None]
  - LOSS OF CONSCIOUSNESS [None]
